FAERS Safety Report 4350184-9 (Version None)
Quarter: 2004Q2

REPORT INFORMATION
  Report Type: 
  Country: None (occurrence: None)
  Receive Date: 20040428
  Receipt Date: 20040419
  Transmission Date: 20050107
  Serious: Yes (Death, Other)
  Sender: FDA-Public Use
  Company Number: 2004-04-0913

PATIENT
  Sex: Female

DRUGS (2)
  1. INTRON A [Suspect]
     Indication: HEPATITIS B
     Dosage: SUBCUTANEOUS
     Route: 058
  2. INTRON A [Suspect]
     Indication: HEPATITIS C
     Dosage: SUBCUTANEOUS
     Route: 058

REACTIONS (5)
  - BLOOD DISORDER [None]
  - CONDITION AGGRAVATED [None]
  - CRYOGLOBULINAEMIA [None]
  - RENAL FAILURE [None]
  - SKIN DISORDER [None]
